FAERS Safety Report 5306529-6 (Version None)
Quarter: 2007Q2

REPORT INFORMATION
  Report Type: 
  Country: None (occurrence: None)
  Receive Date: 20070418
  Receipt Date: 20070410
  Transmission Date: 20071010
  Serious: Yes (Death, Life-Threatening, Hospitalization, Other)
  Sender: FDA-Public Use
  Company Number: 2007SP005670

PATIENT
  Age: 50 Year
  Sex: Female

DRUGS (3)
  1. TEMOZOLOMIDE (S-P) (TEMOZOLOMIDE) [Suspect]
     Indication: METASTASES TO CENTRAL NERVOUS SYSTEM
     Dosage: 150 MG/M2;QD;PO
     Route: 048
     Dates: start: 20010118
  2. LOMUSTINE (LOMUSTINE) [Suspect]
     Indication: METASTASES TO CENTRAL NERVOUS SYSTEM
     Dosage: 60 MG/M2;QD;PO
     Route: 048
  3. NYSTATIN [Concomitant]

REACTIONS (4)
  - BONE MARROW FAILURE [None]
  - HAEMORRHAGE [None]
  - PULMONARY FIBROSIS [None]
  - PULMONARY TOXICITY [None]
